FAERS Safety Report 7047940-5 (Version None)
Quarter: 2010Q4

REPORT INFORMATION
  Report Type: 
  Country: None (occurrence: None)
  Receive Date: 20101015
  Receipt Date: 20101005
  Transmission Date: 20110411
  Serious: Yes (Disabling)
  Sender: FDA-Public Use
  Company Number: US-PERRIGO-10US013664

PATIENT
  Sex: Female
  Weight: 61.224 kg

DRUGS (18)
  1. OXYMETAZOLINE HYDROCHLORIDE EXTRA MOIST 0.05% 065 [Suspect]
     Indication: NASAL CONGESTION
     Dosage: 3 SPRAYS, ONCE
     Route: 045
     Dates: start: 20100624, end: 20100624
  2. OXYMETAZOLINE HYDROCHLORIDE EXTRA MOIST 0.05% 065 [Suspect]
     Indication: PROPHYLAXIS
  3. ENTOCORT EC [Concomitant]
     Indication: CROHN'S DISEASE
     Dosage: 9 MG, QD
     Route: 065
  4. PENTASA [Concomitant]
     Indication: CROHN'S DISEASE
     Dosage: 4 G, QD
     Route: 065
  5. IMODIUM [Concomitant]
     Indication: CROHN'S DISEASE
     Dosage: 8 MG, QD
     Route: 065
  6. PROBIOTIC VSL #3 [Concomitant]
     Indication: CROHN'S DISEASE
     Dosage: UNK
     Route: 065
  7. ALLEGRA [Concomitant]
     Indication: ASTHMA
     Dosage: 180 MG, QD
     Route: 065
  8. ASMANEX TWISTHALER [Concomitant]
     Indication: ASTHMA
     Dosage: 1 PUFF (220 MCG), DAILY
     Route: 055
  9. CALCIUM CITRATE W/VITAMIN D NOS [Concomitant]
     Indication: VITAMIN D DEFICIENCY
     Dosage: 2 TABLETS, DAILY
     Route: 048
  10. ONE A DAY [Concomitant]
     Indication: ROUTINE HEALTH MAINTENANCE
     Dosage: 1 TABLET, DAILY
     Route: 048
  11. IRON [Concomitant]
     Indication: ANAEMIA
     Dosage: 27 MG, QD
     Route: 048
  12. VITAMIN D [Concomitant]
     Indication: VITAMIN D DEFICIENCY
     Dosage: 5,000 IU, 5 TIMES A WEEK
     Route: 065
  13. VITAMIN D [Concomitant]
     Dosage: 50,000 IU, 2 TIMES A WEEK
     Route: 065
  14. ALLERGY MEDICATION [Concomitant]
     Indication: SEASONAL ALLERGY
     Dosage: EVERY 4 WEEKS
     Route: 030
  15. VITAMIN B-12 [Concomitant]
     Indication: PRODUCT USED FOR UNKNOWN INDICATION
     Dosage: ONCE EVERY 3 MONTHS
     Route: 030
  16. IMITREX [Concomitant]
     Indication: SINUS HEADACHE
     Dosage: UNK
     Route: 048
  17. XOPENEX [Concomitant]
     Indication: ASTHMA
     Dosage: PRN
     Route: 055
  18. FLONASE [Concomitant]
     Indication: ASTHMA
     Dosage: 1 PUFF, DAILY
     Route: 055

REACTIONS (4)
  - ANOSMIA [None]
  - BURNING SENSATION [None]
  - HEADACHE [None]
  - RHINALGIA [None]
